FAERS Safety Report 11444920 (Version 2)
Quarter: 2015Q3

REPORT INFORMATION
  Report Type: Spontaneous
  Country: FR (occurrence: FR)
  Receive Date: 20150902
  Receipt Date: 20150903
  Transmission Date: 20151125
  Serious: Yes (Other)
  Sender: FDA-Public Use
  Company Number: PHHY2015FR103870

PATIENT
  Sex: Female

DRUGS (3)
  1. TEGRETOL [Suspect]
     Active Substance: CARBAMAZEPINE
     Indication: FOETAL EXPOSURE DURING PREGNANCY
     Route: 064
  2. VALPROIC ACID. [Suspect]
     Active Substance: VALPROIC ACID
     Indication: FOETAL EXPOSURE DURING PREGNANCY
     Route: 064
  3. GARDENAL ^AVENTIS^ [Suspect]
     Active Substance: PHENOBARBITAL
     Indication: FOETAL EXPOSURE DURING PREGNANCY
     Route: 064

REACTIONS (2)
  - Foetal anticonvulsant syndrome [Unknown]
  - Foetal exposure during pregnancy [Unknown]
